FAERS Safety Report 25801364 (Version 1)
Quarter: 2025Q3

REPORT INFORMATION
  Report Type: Spontaneous
  Country: EU (occurrence: EU)
  Receive Date: 20250915
  Receipt Date: 20250915
  Transmission Date: 20251020
  Serious: Yes (Death, Hospitalization, Other)
  Sender: DR REDDYS
  Company Number: EU-drreddys-LIT/FRA/21/0138348

PATIENT
  Age: 75 Year
  Sex: Male

DRUGS (49)
  1. DAPTOMYCIN [Suspect]
     Active Substance: DAPTOMYCIN
     Indication: Bacteraemia
  2. DAPTOMYCIN [Suspect]
     Active Substance: DAPTOMYCIN
     Indication: Pneumonia
     Dates: start: 201804, end: 201804
  3. DAPTOMYCIN [Suspect]
     Active Substance: DAPTOMYCIN
     Indication: Peritonitis
  4. DAPTOMYCIN [Suspect]
     Active Substance: DAPTOMYCIN
     Indication: Sepsis
  5. COTRIMOXAZOLE [Suspect]
     Active Substance: SULFAMETHOXAZOLE\TRIMETHOPRIM
     Indication: Bacteraemia
  6. COTRIMOXAZOLE [Suspect]
     Active Substance: SULFAMETHOXAZOLE\TRIMETHOPRIM
     Indication: Pneumonia
  7. COTRIMOXAZOLE [Suspect]
     Active Substance: SULFAMETHOXAZOLE\TRIMETHOPRIM
     Indication: Peritonitis
  8. COTRIMOXAZOLE [Suspect]
     Active Substance: SULFAMETHOXAZOLE\TRIMETHOPRIM
     Indication: Sepsis
  9. PIPERACILLIN SODIUM\TAZOBACTAM SODIUM [Suspect]
     Active Substance: PIPERACILLIN SODIUM\TAZOBACTAM SODIUM
     Indication: Bacteraemia
  10. PIPERACILLIN SODIUM\TAZOBACTAM SODIUM [Suspect]
     Active Substance: PIPERACILLIN SODIUM\TAZOBACTAM SODIUM
     Indication: Pneumonia
  11. PIPERACILLIN SODIUM\TAZOBACTAM SODIUM [Suspect]
     Active Substance: PIPERACILLIN SODIUM\TAZOBACTAM SODIUM
     Indication: Peritonitis
  12. PIPERACILLIN SODIUM\TAZOBACTAM SODIUM [Suspect]
     Active Substance: PIPERACILLIN SODIUM\TAZOBACTAM SODIUM
     Indication: Sepsis
  13. IMIPENEM [Suspect]
     Active Substance: IMIPENEM
     Indication: Bacteraemia
  14. IMIPENEM [Suspect]
     Active Substance: IMIPENEM
     Indication: Pneumonia
  15. IMIPENEM [Suspect]
     Active Substance: IMIPENEM
     Indication: Peritonitis
  16. IMIPENEM [Suspect]
     Active Substance: IMIPENEM
     Indication: Sepsis
  17. MEROPENEM [Suspect]
     Active Substance: MEROPENEM
     Indication: Bacteraemia
  18. MEROPENEM [Suspect]
     Active Substance: MEROPENEM
     Indication: Pneumonia
  19. MEROPENEM [Suspect]
     Active Substance: MEROPENEM
     Indication: Peritonitis
  20. MEROPENEM [Suspect]
     Active Substance: MEROPENEM
     Indication: Sepsis
  21. CEFTAROLINE FOSAMIL [Suspect]
     Active Substance: CEFTAROLINE FOSAMIL
     Indication: Bacteraemia
  22. CEFTAROLINE FOSAMIL [Suspect]
     Active Substance: CEFTAROLINE FOSAMIL
     Indication: Pneumonia
  23. CEFTAROLINE FOSAMIL [Suspect]
     Active Substance: CEFTAROLINE FOSAMIL
     Indication: Peritonitis
  24. CEFTAROLINE FOSAMIL [Suspect]
     Active Substance: CEFTAROLINE FOSAMIL
     Indication: Sepsis
  25. AMIKACIN [Suspect]
     Active Substance: AMIKACIN
     Indication: Bacteraemia
  26. AMIKACIN [Suspect]
     Active Substance: AMIKACIN
     Indication: Pneumonia
  27. AMIKACIN [Suspect]
     Active Substance: AMIKACIN
     Indication: Peritonitis
  28. AMIKACIN [Suspect]
     Active Substance: AMIKACIN
     Indication: Sepsis
  29. ERYTHROMYCIN [Suspect]
     Active Substance: ERYTHROMYCIN
     Indication: Bacteraemia
  30. ERYTHROMYCIN [Suspect]
     Active Substance: ERYTHROMYCIN
     Indication: Pneumonia
  31. ERYTHROMYCIN [Suspect]
     Active Substance: ERYTHROMYCIN
     Indication: Peritonitis
  32. ERYTHROMYCIN [Suspect]
     Active Substance: ERYTHROMYCIN
     Indication: Sepsis
  33. LEVOFLOXACIN [Suspect]
     Active Substance: LEVOFLOXACIN
     Indication: Bacteraemia
  34. LEVOFLOXACIN [Suspect]
     Active Substance: LEVOFLOXACIN
     Indication: Pneumonia
  35. LEVOFLOXACIN [Suspect]
     Active Substance: LEVOFLOXACIN
     Indication: Peritonitis
  36. LEVOFLOXACIN [Suspect]
     Active Substance: LEVOFLOXACIN
     Indication: Sepsis
  37. LEVOFLOXACIN [Suspect]
     Active Substance: LEVOFLOXACIN
     Indication: Off label use
  38. LINEZOLID [Suspect]
     Active Substance: LINEZOLID
     Indication: Bacteraemia
  39. LINEZOLID [Suspect]
     Active Substance: LINEZOLID
     Indication: Pneumonia
  40. LINEZOLID [Suspect]
     Active Substance: LINEZOLID
     Indication: Peritonitis
  41. LINEZOLID [Suspect]
     Active Substance: LINEZOLID
     Indication: Sepsis
  42. VANCOMYCIN [Suspect]
     Active Substance: VANCOMYCIN
     Indication: Bacteraemia
  43. VANCOMYCIN [Suspect]
     Active Substance: VANCOMYCIN
     Indication: Pneumonia
  44. VANCOMYCIN [Suspect]
     Active Substance: VANCOMYCIN
     Indication: Peritonitis
  45. VANCOMYCIN [Suspect]
     Active Substance: VANCOMYCIN
     Indication: Sepsis
  46. AVIBACTAM SODIUM\CEFTAZIDIME [Suspect]
     Active Substance: AVIBACTAM SODIUM\CEFTAZIDIME
     Indication: Bacteraemia
  47. AVIBACTAM SODIUM\CEFTAZIDIME [Suspect]
     Active Substance: AVIBACTAM SODIUM\CEFTAZIDIME
     Indication: Pneumonia
  48. AVIBACTAM SODIUM\CEFTAZIDIME [Suspect]
     Active Substance: AVIBACTAM SODIUM\CEFTAZIDIME
     Indication: Peritonitis
  49. AVIBACTAM SODIUM\CEFTAZIDIME [Suspect]
     Active Substance: AVIBACTAM SODIUM\CEFTAZIDIME
     Indication: Sepsis

REACTIONS (3)
  - Treatment failure [Fatal]
  - Pathogen resistance [Unknown]
  - Off label use [Recovered/Resolved]

NARRATIVE: CASE EVENT DATE: 20180101
